FAERS Safety Report 7340585-9 (Version None)
Quarter: 2011Q1

REPORT INFORMATION
  Report Type: 
  Country: None (occurrence: None)
  Receive Date: 20110210
  Receipt Date: 20101119
  Transmission Date: 20110831
  Serious: Yes (Hospitalization)
  Sender: FDA-Public Use
  Company Number: 20101119CINRY1702

PATIENT
  Age: 40 Year
  Sex: Female

DRUGS (2)
  1. CINRYZE [Suspect]
     Indication: HEREDITARY ANGIOEDEMA
     Dosage: (1000 UNIT, 2 IN 1 WK), INTRAVENOUS
     Route: 042
     Dates: start: 20100501
  2. CINRYZE [Suspect]
     Indication: PROPHYLAXIS
     Dosage: (1000 UNIT, 2 IN 1 WK), INTRAVENOUS
     Route: 042
     Dates: start: 20100501

REACTIONS (2)
  - HEREDITARY ANGIOEDEMA [None]
  - STRESS AT WORK [None]
